FAERS Safety Report 6094133-4 (Version None)
Quarter: 2009Q1

REPORT INFORMATION
  Report Type: 
  Country: None (occurrence: None)
  Receive Date: 20090224
  Receipt Date: 20090224
  Transmission Date: 20090719
  Serious: No
  Sender: FDA-Public Use
  Company Number: None

PATIENT
  Age: 47 Year
  Sex: Female
  Weight: 63.5036 kg

DRUGS (2)
  1. ALDARA [Suspect]
     Indication: SQUAMOUS CELL CARCINOMA OF SKIN
     Dosage: APPLY TO LESION ON SCALP MON-FRI AT HS TOP
     Route: 061
     Dates: start: 20080819, end: 20080910
  2. ALDARA [Suspect]
     Indication: SQUAMOUS CELL CARCINOMA OF SKIN
     Dosage: APPLY TO LESION ON SCALP MON-FRI AT HS TOP
     Route: 061
     Dates: start: 20080910, end: 20080910

REACTIONS (6)
  - BURNING SENSATION [None]
  - INSOMNIA [None]
  - MALAISE [None]
  - MUSCULAR WEAKNESS [None]
  - NEUROPATHY PERIPHERAL [None]
  - TINNITUS [None]
